FAERS Safety Report 25563105 (Version 1)
Quarter: 2025Q3

REPORT INFORMATION
  Report Type: Spontaneous
  Country: CN (occurrence: CN)
  Receive Date: 20250716
  Receipt Date: 20250716
  Transmission Date: 20251020
  Serious: Yes (Other)
  Sender: BAXTER
  Company Number: None

PATIENT
  Age: 57 Year
  Sex: Female
  Weight: 59 kg

DRUGS (5)
  1. CYCLOPHOSPHAMIDE [Suspect]
     Active Substance: CYCLOPHOSPHAMIDE
     Indication: Breast cancer female
     Dosage: 800 MG, QD
     Route: 041
     Dates: start: 20250613, end: 20250613
  2. SODIUM CHLORIDE [Suspect]
     Active Substance: SODIUM CHLORIDE
     Dosage: 250 ML, QD (EPIRUBICIN HYDROCHLORIDE+0.9% SODIUM CHLORIDE)
     Route: 041
     Dates: start: 20250613, end: 20250615
  3. SODIUM CHLORIDE [Suspect]
     Active Substance: SODIUM CHLORIDE
     Dosage: 250 ML, QD (CYCLOPHOSPHAMIDE+ 0.9% SODIUM CHLORIDE)
     Route: 041
     Dates: start: 20250613, end: 20250613
  4. EPIRUBICIN HYDROCHLORIDE [Suspect]
     Active Substance: EPIRUBICIN HYDROCHLORIDE
     Indication: Breast cancer female
     Dosage: 60 MG, QD (60MG 1S D1,60MG 1S D2)
     Route: 041
     Dates: start: 20250613, end: 20250614
  5. EPIRUBICIN HYDROCHLORIDE [Suspect]
     Active Substance: EPIRUBICIN HYDROCHLORIDE
     Dosage: 40 MG, QD (40MG 1S D3)
     Route: 041
     Dates: start: 20250615, end: 20250615

REACTIONS (3)
  - Myelosuppression [Recovering/Resolving]
  - White blood cell count decreased [Unknown]
  - Neutrophil count decreased [Unknown]

NARRATIVE: CASE EVENT DATE: 20250623
